FAERS Safety Report 21001150 (Version 1)
Quarter: 2022Q2

REPORT INFORMATION
  Report Type: Spontaneous
  Country: US (occurrence: US)
  Receive Date: 20220624
  Receipt Date: 20220624
  Transmission Date: 20220720
  Serious: No
  Sender: FDA-Public Use
  Company Number: US-BioHaven Pharmaceuticals-2022BHV000779

PATIENT
  Age: 45 Year
  Sex: Male
  Weight: 102.15 kg

DRUGS (2)
  1. NURTEC ODT [Suspect]
     Active Substance: RIMEGEPANT SULFATE
     Indication: Cluster headache
     Dosage: 1 TABLET/PREVENTATIVE MEDICATION TO TAKE DAILY
     Route: 048
     Dates: start: 2022
  2. CORTIZONE 10 [Concomitant]
     Active Substance: HYDROCORTISONE
     Indication: Product used for unknown indication
     Dosage: ALREADY HAD ONE OF THOSE THIS YEAR
     Route: 065
     Dates: start: 2022

REACTIONS (2)
  - Off label use [Unknown]
  - Drug ineffective for unapproved indication [Unknown]
